FAERS Safety Report 5708503-4 (Version None)
Quarter: 2008Q2

REPORT INFORMATION
  Report Type: 
  Country: None (occurrence: None)
  Receive Date: 20080417
  Receipt Date: 20070403
  Transmission Date: 20081010
  Serious: No
  Sender: FDA-Public Use
  Company Number: US-BRISTOL-MYERS SQUIBB COMPANY-13737556

PATIENT

DRUGS (1)
  1. PARAPLATIN [Suspect]
     Dates: start: 20070320

REACTIONS (1)
  - HYPERSENSITIVITY [None]
